FAERS Safety Report 7826114-1 (Version None)
Quarter: 2011Q4

REPORT INFORMATION
  Report Type: 
  Country: None (occurrence: None)
  Receive Date: 20111019
  Receipt Date: 20111010
  Transmission Date: 20120403
  Serious: Yes (Hospitalization, Other)
  Sender: FDA-Public Use
  Company Number: US-ASTRAZENECA-2011SE22029

PATIENT
  Age: 54 Year
  Sex: Female
  Weight: 65.3 kg

DRUGS (21)
  1. SEROQUEL [Suspect]
     Indication: BIPOLAR DISORDER
     Route: 048
     Dates: start: 19930101
  2. HYDROXYZINE [Concomitant]
  3. ZINC [Concomitant]
  4. FUROSEMIDE [Concomitant]
  5. FOLIC ACID [Concomitant]
  6. TANZANADINE [Concomitant]
     Dosage: THREE TIMES A DAY
     Route: 048
  7. ATENOLOL [Concomitant]
     Route: 048
  8. EFFEXOR [Concomitant]
  9. VIMPAT [Concomitant]
     Dosage: 300 MG, TWO TIMES A DAY
  10. CLONAZEPAM [Concomitant]
  11. ZANAFLEX [Concomitant]
     Route: 048
  12. NEXIUM [Concomitant]
     Route: 048
  13. ZONISANIDE [Concomitant]
  14. VALIUM [Concomitant]
     Dosage: 30 MG, THREE TIMES A DAY
     Route: 048
  15. SEROQUEL [Suspect]
     Indication: DEPRESSION
     Route: 048
     Dates: start: 19930101
  16. PRESTIQUE [Concomitant]
     Route: 048
  17. ZENOGRAN [Concomitant]
     Route: 048
  18. SEROQUEL [Suspect]
     Indication: SLEEP DISORDER
     Route: 048
     Dates: start: 19930101
  19. DEPAKOTE [Concomitant]
     Indication: EPILEPSY
     Route: 048
  20. SIMVASTATIN [Concomitant]
  21. ZANTAC [Concomitant]
     Dosage: 150 MG, TWO TIMES A DAY
     Route: 048

REACTIONS (17)
  - EPILEPSY [None]
  - CARDIAC DISORDER [None]
  - GASTRIC ULCER [None]
  - FALL [None]
  - TENDON RUPTURE [None]
  - VOMITING [None]
  - INCORRECT DOSE ADMINISTERED [None]
  - MYOCARDIAL INFARCTION [None]
  - DEPRESSION [None]
  - SCHIZOPHRENIA, PARANOID TYPE [None]
  - UPPER LIMB FRACTURE [None]
  - WEIGHT DECREASED [None]
  - WRONG TECHNIQUE IN DRUG USAGE PROCESS [None]
  - DRUG DOSE OMISSION [None]
  - CLAVICLE FRACTURE [None]
  - BIPOLAR DISORDER [None]
  - LIGAMENT RUPTURE [None]
